FAERS Safety Report 23997788 (Version 1)
Quarter: 2024Q2

REPORT INFORMATION
  Report Type: Spontaneous
  Country: US (occurrence: US)
  Receive Date: 20240621
  Receipt Date: 20240621
  Transmission Date: 20240716
  Serious: No
  Sender: FDA-Public Use
  Company Number: US-JNJFOC-20240583194

PATIENT
  Sex: Female

DRUGS (15)
  1. ZYRTEC [Suspect]
     Active Substance: CETIRIZINE HYDROCHLORIDE
     Indication: Pruritus
     Route: 048
     Dates: start: 2024
  2. ZYRTEC [Suspect]
     Active Substance: CETIRIZINE HYDROCHLORIDE
     Indication: Ear inflammation
  3. ZYRTEC [Suspect]
     Active Substance: CETIRIZINE HYDROCHLORIDE
     Indication: Feeling hot
  4. CORTISONE [Concomitant]
     Active Substance: CORTISONE
     Indication: Inflammation
     Route: 065
  5. CORTISONE [Concomitant]
     Active Substance: CORTISONE
     Indication: Pruritus
  6. CORTISONE [Concomitant]
     Active Substance: CORTISONE
     Indication: Skin warm
  7. CORTISONE [Concomitant]
     Active Substance: CORTISONE
     Indication: Purulence
  8. HYDROGEN PEROXIDE [Concomitant]
     Active Substance: HYDROGEN PEROXIDE
     Indication: Inflammation
     Route: 065
  9. HYDROGEN PEROXIDE [Concomitant]
     Active Substance: HYDROGEN PEROXIDE
     Indication: Pruritus
  10. HYDROGEN PEROXIDE [Concomitant]
     Active Substance: HYDROGEN PEROXIDE
     Indication: Skin warm
  11. HYDROGEN PEROXIDE [Concomitant]
     Active Substance: HYDROGEN PEROXIDE
     Indication: Purulence
  12. AMOXICILLIN [Concomitant]
     Active Substance: AMOXICILLIN
     Indication: Pruritus
     Route: 065
  13. AMOXICILLIN [Concomitant]
     Active Substance: AMOXICILLIN
     Indication: Ear inflammation
  14. MUPIROCIN [Concomitant]
     Active Substance: MUPIROCIN
     Indication: Pruritus
     Route: 065
  15. MUPIROCIN [Concomitant]
     Active Substance: MUPIROCIN
     Indication: Ear inflammation

REACTIONS (1)
  - Product use in unapproved indication [Unknown]

NARRATIVE: CASE EVENT DATE: 20240101
